FAERS Safety Report 9678483 (Version 2)
Quarter: 2015Q3

REPORT INFORMATION
  Report Type: Report from Study
  Country: US (occurrence: US)
  Receive Date: 20131108
  Receipt Date: 20150929
  Transmission Date: 20151125
  Serious: Yes (Other)
  Sender: FDA-Public Use
  Company Number: US-ROCHE-1299338

PATIENT
  Sex: Male

DRUGS (12)
  1. LUCENTIS [Suspect]
     Active Substance: RANIBIZUMAB
     Indication: RETINAL VEIN OCCLUSION
     Route: 050
  2. CARVEDILOL. [Concomitant]
     Active Substance: CARVEDILOL
     Route: 048
  3. PLAVIX [Concomitant]
     Active Substance: CLOPIDOGREL BISULFATE
     Route: 048
  4. LUCENTIS [Suspect]
     Active Substance: RANIBIZUMAB
     Indication: RETINOPATHY
     Dosage: OC
     Route: 050
  5. LUCENTIS [Suspect]
     Active Substance: RANIBIZUMAB
     Indication: RETINAL OEDEMA
  6. ERYTHROMYCIN OINTMENT [Concomitant]
     Active Substance: ERYTHROMYCIN
     Dosage: 5 MG/GRAM (0.5%),OD PRN AFTER INJECTION
     Route: 065
  7. LISINOPRIL. [Concomitant]
     Active Substance: LISINOPRIL
  8. LUCENTIS [Suspect]
     Active Substance: RANIBIZUMAB
     Indication: VENOUS OCCLUSION
  9. LOVASTATIN. [Concomitant]
     Active Substance: LOVASTATIN
  10. FOLIC ACID. [Concomitant]
     Active Substance: FOLIC ACID
  11. NAPROXEN. [Concomitant]
     Active Substance: NAPROXEN
     Route: 048
  12. ASPIRIN. [Concomitant]
     Active Substance: ASPIRIN
     Route: 048

REACTIONS (12)
  - Neovascularisation [Unknown]
  - Retinal neovascularisation [Unknown]
  - Vitreous floaters [Unknown]
  - Retinal haemorrhage [Unknown]
  - Conjunctival haemorrhage [Unknown]
  - Retinal vascular disorder [Unknown]
  - Angiosclerosis [Unknown]
  - Arcus lipoides [Unknown]
  - Vitreous haemorrhage [Unknown]
  - Cataract nuclear [Unknown]
  - Macular pigmentation [Unknown]
  - Vision blurred [Unknown]
